FAERS Safety Report 12852375 (Version 1)
Quarter: 2016Q4

REPORT INFORMATION
  Report Type: Spontaneous
  Country: US (occurrence: US)
  Receive Date: 20161017
  Receipt Date: 20161017
  Transmission Date: 20170207
  Serious: Yes (Other)
  Sender: FDA-Public Use
  Company Number: US-BAYER-2016-195755

PATIENT
  Sex: Female

DRUGS (1)
  1. MIRENA [Suspect]
     Active Substance: LEVONORGESTREL
     Dosage: 20 MCG/24HR, CONT
     Route: 015
     Dates: start: 20160520

REACTIONS (4)
  - Genital haemorrhage [None]
  - Weight increased [None]
  - Dyspareunia [None]
  - Genital discharge [None]

NARRATIVE: CASE EVENT DATE: 2016
